FAERS Safety Report 21280157 (Version 1)
Quarter: 2022Q3

REPORT INFORMATION
  Report Type: Spontaneous
  Country: US (occurrence: None)
  Receive Date: 20220831
  Receipt Date: 20220831
  Transmission Date: 20221027
  Serious: No
  Sender: FDA-Public Use
  Company Number: None

PATIENT
  Age: 80 Year
  Sex: Male
  Weight: 70.65 kg

DRUGS (7)
  1. ZIOPTAN [Suspect]
     Active Substance: TAFLUPROST
     Indication: Open angle glaucoma
     Dosage: OTHER QUANTITY : 1 DROP(S);?FREQUENCY : AT BEDTIME;?
     Route: 047
  2. LUMIGAN [Suspect]
     Active Substance: BIMATOPROST
  3. ZIOPTAN [Concomitant]
     Active Substance: TAFLUPROST
  4. VITAMIN B12 [Concomitant]
     Active Substance: CYANOCOBALAMIN
  5. VITAMIN D3 [Concomitant]
     Active Substance: CHOLECALCIFEROL
  6. ZINC [Concomitant]
     Active Substance: ZINC
  7. Glucose meter [Concomitant]

REACTIONS (7)
  - Photopsia [None]
  - Vitreous detachment [None]
  - Dry eye [None]
  - Eye irritation [None]
  - Eye pain [None]
  - Vision blurred [None]
  - Ocular hyperaemia [None]

NARRATIVE: CASE EVENT DATE: 20220831
